FAERS Safety Report 17129701 (Version 3)
Quarter: 2019Q4

REPORT INFORMATION
  Report Type: Spontaneous
  Country: US (occurrence: US)
  Receive Date: 20191209
  Receipt Date: 20191223
  Transmission Date: 20200122
  Serious: Yes (Death, Hospitalization)
  Sender: FDA-Public Use
  Company Number: US-BIOGEN-2019BI00814271

PATIENT
  Age: 24 Year
  Sex: Male

DRUGS (3)
  1. SPINRAZA [Suspect]
     Active Substance: NUSINERSEN
     Dosage: LOADING DOSE NO.4
     Route: 037
     Dates: start: 20190308, end: 20190308
  2. SPINRAZA [Suspect]
     Active Substance: NUSINERSEN
     Dosage: MAINTENANCE DOSING
     Route: 037
     Dates: start: 20190726, end: 20191125
  3. SPINRAZA [Suspect]
     Active Substance: NUSINERSEN
     Indication: SPINAL MUSCULAR ATROPHY
     Dosage: LOADING DOSES 1-3
     Route: 037
     Dates: start: 20190104, end: 20190208

REACTIONS (10)
  - Back pain [Unknown]
  - Meningitis [Unknown]
  - Respiratory distress [Not Recovered/Not Resolved]
  - Coma [Not Recovered/Not Resolved]
  - Hypoaesthesia [Unknown]
  - Nausea [Unknown]
  - Post procedural contusion [Unknown]
  - Procedural pain [Unknown]
  - Post lumbar puncture syndrome [Not Recovered/Not Resolved]
  - Cardiac arrest [Fatal]

NARRATIVE: CASE EVENT DATE: 201911
